FAERS Safety Report 8895004 (Version 1)
Quarter: 2012Q4

REPORT INFORMATION
  Report Type: 
  Country: GR (occurrence: GR)
  Receive Date: 20121108
  Receipt Date: 20121108
  Transmission Date: 20130627
  Serious: Yes (Other)
  Sender: FDA-Public Use
  Company Number: PHHY2012GR102377

PATIENT

DRUGS (1)
  1. TASIGNA [Suspect]

REACTIONS (1)
  - Priapism [Unknown]
